FAERS Safety Report 18314578 (Version 4)
Quarter: 2023Q4

REPORT INFORMATION
  Report Type: Report from Study
  Country: US (occurrence: US)
  Receive Date: 20200926
  Receipt Date: 20231005
  Transmission Date: 20240110
  Serious: Yes (Other)
  Sender: FDA-Public Use
  Company Number: US-SHIRE-US202031264

PATIENT

DRUGS (22)
  1. TEDUGLUTIDE [Suspect]
     Active Substance: TEDUGLUTIDE
     Indication: Short-bowel syndrome
     Dosage: 2.5 MILLIGRAM, QD
     Route: 058
     Dates: start: 20200106
  2. TEDUGLUTIDE [Suspect]
     Active Substance: TEDUGLUTIDE
     Indication: Short-bowel syndrome
     Dosage: 2.5 MILLIGRAM, QD
     Route: 058
     Dates: start: 20200106
  3. TEDUGLUTIDE [Suspect]
     Active Substance: TEDUGLUTIDE
     Indication: Short-bowel syndrome
     Dosage: 2.5 MILLIGRAM, QD
     Route: 058
     Dates: start: 20200106
  4. TEDUGLUTIDE [Suspect]
     Active Substance: TEDUGLUTIDE
     Indication: Short-bowel syndrome
     Dosage: 2.5 MILLIGRAM, QD
     Route: 058
     Dates: start: 20200106
  5. TEDUGLUTIDE [Suspect]
     Active Substance: TEDUGLUTIDE
     Dosage: 2.5 MILLIGRAM, QD
     Route: 058
  6. TEDUGLUTIDE [Suspect]
     Active Substance: TEDUGLUTIDE
     Dosage: 2.5 MILLIGRAM, QD
     Route: 058
  7. TEDUGLUTIDE [Suspect]
     Active Substance: TEDUGLUTIDE
     Dosage: 2.5 MILLIGRAM, QD
     Route: 058
  8. TEDUGLUTIDE [Suspect]
     Active Substance: TEDUGLUTIDE
     Dosage: 2.5 MILLIGRAM, QD
     Route: 058
  9. LEVOCARNITINE [Concomitant]
     Active Substance: LEVOCARNITINE
     Dosage: 1 GRAM
  10. PRIMSOL [Concomitant]
     Active Substance: TRIMETHOPRIM HYDROCHLORIDE
     Dosage: 100 MILLIGRAM
  11. VITAMIN D3 [Concomitant]
     Active Substance: CHOLECALCIFEROL
  12. OXYCODONE AND ACETAMINOPHEN [Concomitant]
     Active Substance: ACETAMINOPHEN\OXYCODONE HYDROCHLORIDE
  13. ZOFRAN [Concomitant]
     Active Substance: ONDANSETRON HYDROCHLORIDE
  14. OCTREOTIDE ACETATE [Concomitant]
     Active Substance: OCTREOTIDE ACETATE
  15. LEVOTHYROXINE [Concomitant]
     Active Substance: LEVOTHYROXINE
  16. VITAMIN B12 [Concomitant]
     Active Substance: CYANOCOBALAMIN
     Dosage: 2000 MICROGRAM
  17. DURAGESIC [Concomitant]
     Active Substance: FENTANYL
     Dosage: 100 MICROGRAM
  18. LEXAPRO [Concomitant]
     Active Substance: ESCITALOPRAM OXALATE
     Dosage: 20 MILLIGRAM
  19. TRIMETHOPRIM [Concomitant]
     Active Substance: TRIMETHOPRIM
     Indication: Product used for unknown indication
  20. RANITIDINE [Concomitant]
     Active Substance: RANITIDINE
     Indication: Product used for unknown indication
  21. ERTAPENEM [Concomitant]
     Active Substance: ERTAPENEM
  22. MACROBID [Concomitant]
     Active Substance: NITROFURANTOIN\NITROFURANTOIN MONOHYDRATE

REACTIONS (6)
  - Colorectal cancer [Unknown]
  - Muscle spasms [Unknown]
  - Eye infection [Unknown]
  - Gastroenteritis viral [Unknown]
  - Urinary tract infection [Unknown]
  - COVID-19 [Unknown]

NARRATIVE: CASE EVENT DATE: 20230915
